FAERS Safety Report 19976175 (Version 2)
Quarter: 2021Q4

REPORT INFORMATION
  Report Type: Report from Study
  Country: US (occurrence: None)
  Receive Date: 20211020
  Receipt Date: 20211111
  Transmission Date: 20220303
  Serious: Yes (Hospitalization)
  Sender: FDA-Public Use
  Company Number: US-ROCHE-2931443

PATIENT
  Age: 61 Year
  Sex: Female
  Weight: 61.8 kg

DRUGS (4)
  1. ATEZOLIZUMAB [Suspect]
     Active Substance: ATEZOLIZUMAB
     Indication: Invasive breast carcinoma
     Dosage: ON 08/APR/2021, SHE RECEIVED MOST RECENT DOSE OF BLINDED ATEZOLIZUMAB PRIOR TO THE EVENT.
     Route: 041
     Dates: start: 20200910
  2. PACLITAXEL [Suspect]
     Active Substance: PACLITAXEL
     Indication: Invasive breast carcinoma
     Dosage: TOTAL DOSE: 0 MG?ON 04/FEB/2021, THE DOSE OF PACLITAXEL WAS WITHDRAWN.?ON 28/JAN/2021, SHE RECEIVED
     Route: 042
     Dates: start: 20200910, end: 20210204
  3. PERTUZUMAB [Suspect]
     Active Substance: PERTUZUMAB
     Indication: Invasive breast carcinoma
     Dosage: ON 08/APR/2021, SHE RECEIVED MOST RECENT DOSE OF PERTUZUMAB PRIOR TO THE EVENT.
     Route: 042
     Dates: start: 20200910
  4. TRASTUZUMAB [Suspect]
     Active Substance: TRASTUZUMAB
     Indication: Invasive breast carcinoma
     Dosage: ON 08/APR/2021, SHE RECEIVED MOST RECENT DOSE OF TRASTUZUMAB PRIOR TO THE EVENT.
     Route: 041
     Dates: start: 20200910

REACTIONS (1)
  - Cellulitis [Recovered/Resolved with Sequelae]

NARRATIVE: CASE EVENT DATE: 20210410
